FAERS Safety Report 17031813 (Version 2)
Quarter: 2020Q1

REPORT INFORMATION
  Report Type: Report from Study
  Country: US (occurrence: US)
  Receive Date: 20191114
  Receipt Date: 20200107
  Transmission Date: 20200409
  Serious: No
  Sender: FDA-Public Use
  Company Number: US-BEH-2019109401

PATIENT
  Age: 35 Year
  Sex: Female
  Weight: 70.75 kg

DRUGS (3)
  1. HIZENTRA [Suspect]
     Active Substance: HUMAN IMMUNOGLOBULIN G
     Indication: HYPOGAMMAGLOBULINAEMIA
     Dosage: 11 GRAM, QW
     Route: 058
     Dates: start: 20191106, end: 20191120
  2. HIZENTRA [Suspect]
     Active Substance: HUMAN IMMUNOGLOBULIN G
     Dosage: UNK
     Route: 058
     Dates: start: 20191106, end: 20191106
  3. HIZENTRA [Suspect]
     Active Substance: HUMAN IMMUNOGLOBULIN G
     Dosage: UNK
     Route: 058
     Dates: start: 20191106, end: 20191106

REACTIONS (4)
  - Headache [Recovered/Resolved]
  - Hypotension [Recovered/Resolved]
  - No adverse event [Unknown]
  - Product distribution issue [Unknown]

NARRATIVE: CASE EVENT DATE: 20191110
